FAERS Safety Report 11195011 (Version 1)
Quarter: 2015Q2

REPORT INFORMATION
  Report Type: Spontaneous
  Country: US (occurrence: None)
  Receive Date: 20150615
  Receipt Date: 20150615
  Transmission Date: 20150821
  Serious: Yes (Hospitalization, Other)
  Sender: FDA-Public Use
  Company Number: 2015-11536

PATIENT
  Sex: Male

DRUGS (1)
  1. EYLEA [Suspect]
     Active Substance: AFLIBERCEPT
     Indication: NEOVASCULAR AGE-RELATED MACULAR DEGENERATION
     Dosage: Q8WKS, INTRAOCULAR
     Route: 031
     Dates: start: 2014

REACTIONS (2)
  - Transient ischaemic attack [None]
  - Sepsis [None]

NARRATIVE: CASE EVENT DATE: 201505
